FAERS Safety Report 14267929 (Version 1)
Quarter: 2017Q4

REPORT INFORMATION
  Report Type: Spontaneous
  Country: US (occurrence: US)
  Receive Date: 20171211
  Receipt Date: 20171211
  Transmission Date: 20180321
  Serious: No
  Sender: FDA-Public Use
  Company Number: US-ROCHE-1938570

PATIENT
  Sex: Female
  Weight: 95.34 kg

DRUGS (2)
  1. VALIUM [Suspect]
     Active Substance: DIAZEPAM
     Indication: PANIC DISORDER
     Route: 048
     Dates: start: 2008
  2. VALIUM [Suspect]
     Active Substance: DIAZEPAM
     Indication: CEREBROVASCULAR ACCIDENT

REACTIONS (6)
  - Feeling abnormal [Not Recovered/Not Resolved]
  - Hyperthyroidism [Recovered/Resolved]
  - Insomnia [Not Recovered/Not Resolved]
  - Hot flush [Not Recovered/Not Resolved]
  - Product quality issue [Unknown]
  - Vision blurred [Not Recovered/Not Resolved]

NARRATIVE: CASE EVENT DATE: 2010
